FAERS Safety Report 10558027 (Version 4)
Quarter: 2014Q4

REPORT INFORMATION
  Report Type: Spontaneous
  Country: JP (occurrence: JP)
  Receive Date: 20141031
  Receipt Date: 20141118
  Transmission Date: 20150529
  Serious: Yes (Death, Hospitalization)
  Sender: FDA-Public Use
  Company Number: PHHY2014JP130199

PATIENT
  Age: 81 Year
  Sex: Female

DRUGS (4)
  1. EXELON PATCH [Suspect]
     Active Substance: RIVASTIGMINE
     Indication: DEMENTIA
     Dosage: 4.6 MG/24 HOURS (RIVASTIGMINE BASE 9 MG)
     Route: 062
  2. EXELON PATCH [Suspect]
     Active Substance: RIVASTIGMINE
     Dosage: 4.6 MG/24 HOURS (RIVASTIGMINE BASE 9 MG)
     Route: 062
     Dates: end: 20141009
  3. EXELON PATCH [Suspect]
     Active Substance: RIVASTIGMINE
     Dosage: 4.6 MG, 2 PATCHES (RIVASTIGMINE BASE 9 MG)
     Route: 062
  4. ARICEPT [Suspect]
     Active Substance: DONEPEZIL HYDROCHLORIDE
     Indication: PRODUCT USED FOR UNKNOWN INDICATION
     Dosage: UNK
     Route: 065

REACTIONS (4)
  - Drug administration error [Unknown]
  - Duodenal stenosis [Unknown]
  - Lymphoma [Fatal]
  - Feeding disorder [Unknown]

NARRATIVE: CASE EVENT DATE: 20140922
